FAERS Safety Report 21589583 (Version 1)
Quarter: 2022Q4

REPORT INFORMATION
  Report Type: Spontaneous
  Country: SE (occurrence: SE)
  Receive Date: 20221114
  Receipt Date: 20221114
  Transmission Date: 20230112
  Serious: Yes (Other)
  Sender: FDA-Public Use
  Company Number: SE-GLAXOSMITHKLINE-SE2022EME166873

PATIENT

DRUGS (2)
  1. ZEJULA [Suspect]
     Active Substance: NIRAPARIB
     Indication: Product used for unknown indication
     Dosage: 200 MG
     Dates: start: 20220131
  2. ZEJULA [Suspect]
     Active Substance: NIRAPARIB
     Dosage: 100 MG, QD
     Dates: start: 202205

REACTIONS (9)
  - Pancytopenia [Unknown]
  - Pneumonia [Unknown]
  - Sepsis [Unknown]
  - Pruritus [Unknown]
  - Erythema [Unknown]
  - Feeling hot [Unknown]
  - Anorectal discomfort [Unknown]
  - Tooth disorder [Unknown]
  - Gingivitis [Unknown]

NARRATIVE: CASE EVENT DATE: 20220301
